FAERS Safety Report 9315750 (Version 2)
Quarter: 2013Q2

REPORT INFORMATION
  Report Type: Report from Study
  Country: JP (occurrence: JP)
  Receive Date: 20130529
  Receipt Date: 20130621
  Transmission Date: 20140414
  Serious: Yes (Other)
  Sender: FDA-Public Use
  Company Number: JP-GILEAD-2013-0075714

PATIENT
  Age: 72 Year
  Sex: Female

DRUGS (16)
  1. AMBRISENTAN [Suspect]
     Indication: PULMONARY ARTERIAL HYPERTENSION
     Dosage: 2.5 MG, QD
     Route: 048
     Dates: start: 20120201
  2. REVATIO [Concomitant]
     Indication: PULMONARY ARTERIAL HYPERTENSION
     Route: 048
  3. REVATIO [Concomitant]
     Route: 048
  4. REVATIO [Concomitant]
     Route: 048
  5. REVATIO [Concomitant]
     Route: 048
  6. FRUSEMIDE                          /00032601/ [Concomitant]
     Indication: CARDIAC FAILURE
     Route: 048
  7. FRUSEMIDE                          /00032601/ [Concomitant]
     Route: 048
  8. ALESION [Concomitant]
     Indication: ASTHMA
     Route: 048
  9. ALESION [Concomitant]
     Route: 048
  10. ALESION [Concomitant]
     Route: 048
  11. ALESION [Concomitant]
     Route: 048
  12. SALAGEN [Concomitant]
     Route: 048
     Dates: start: 20121114
  13. CLARITHROMYCIN [Concomitant]
     Indication: BRONCHITIS
     Dosage: UNK
     Dates: start: 20120912, end: 20121113
  14. CLARITHROMYCIN [Concomitant]
     Dosage: UNK
     Dates: start: 20120509, end: 20120518
  15. CLARITHROMYCIN [Concomitant]
     Dosage: UNK
     Dates: end: 20120207
  16. VENAPASTA [Concomitant]
     Indication: PRURITUS
     Dosage: UNK
     Route: 062
     Dates: start: 20120912, end: 20121113

REACTIONS (4)
  - Sjogren^s syndrome [Recovering/Resolving]
  - Bronchitis [Recovered/Resolved]
  - Bronchitis [Recovered/Resolved]
  - Pruritus [Recovered/Resolved]
